FAERS Safety Report 4889798-6 (Version None)
Quarter: 2006Q1

REPORT INFORMATION
  Report Type: 
  Country: None (occurrence: None)
  Receive Date: 20060124
  Receipt Date: 20050725
  Transmission Date: 20060701
  Serious: Yes (Hospitalization, Other)
  Sender: FDA-Public Use
  Company Number: US-MERCK-0507USA03910

PATIENT
  Age: 70 Year
  Sex: Female
  Weight: 64 kg

DRUGS (2)
  1. VIOXX [Suspect]
     Indication: PAIN
     Route: 048
     Dates: start: 19990101, end: 20040101
  2. VIOXX [Suspect]
     Indication: OSTEOARTHRITIS
     Route: 048
     Dates: start: 19990101, end: 20040101

REACTIONS (40)
  - AFFECTIVE DISORDER [None]
  - ANGIOPATHY [None]
  - ARTHROPATHY [None]
  - ASTHENIA [None]
  - BLADDER DISORDER [None]
  - BUNION [None]
  - BURSITIS [None]
  - CEREBRAL ATROPHY [None]
  - CEREBROVASCULAR ACCIDENT [None]
  - CHEST PAIN [None]
  - CORONARY ARTERY OCCLUSION [None]
  - DEPRESSION [None]
  - DIARRHOEA [None]
  - DIASTOLIC DYSFUNCTION [None]
  - DIVERTICULITIS [None]
  - DIZZINESS [None]
  - DYSPNOEA [None]
  - GASTRITIS EROSIVE [None]
  - GASTROOESOPHAGEAL REFLUX DISEASE [None]
  - HELICOBACTER PYLORI IDENTIFICATION TEST POSITIVE [None]
  - HIATUS HERNIA [None]
  - HYPONATRAEMIA [None]
  - HYPOVOLAEMIA [None]
  - INAPPROPRIATE ANTIDIURETIC HORMONE SECRETION [None]
  - INTERVERTEBRAL DISC DISORDER [None]
  - KIDNEY INFECTION [None]
  - LUMBAR RADICULOPATHY [None]
  - MYOCARDIAL INFARCTION [None]
  - NEURALGIA [None]
  - NEUROMA [None]
  - NUTRITIONAL CONDITION ABNORMAL [None]
  - ORTHOSTATIC HYPOTENSION [None]
  - OSTEOARTHRITIS [None]
  - PULMONARY GRANULOMA [None]
  - SPONDYLOLISTHESIS [None]
  - SYNCOPE [None]
  - TOE DEFORMITY [None]
  - URINARY INCONTINENCE [None]
  - URINARY TRACT INFECTION [None]
  - VENTRICULAR FIBRILLATION [None]
